FAERS Safety Report 11105823 (Version 1)
Quarter: 2015Q2

REPORT INFORMATION
  Report Type: Spontaneous
  Country: US (occurrence: None)
  Receive Date: 20150511
  Receipt Date: 20150511
  Transmission Date: 20150821
  Serious: Yes (Other)
  Sender: FDA-Public Use
  Company Number: None

PATIENT
  Age: 28 Year
  Sex: Female
  Weight: 65.9 kg

DRUGS (1)
  1. MICROGESTIN FE [Suspect]
     Active Substance: ETHINYL ESTRADIOL\FERROUS FUMARATE\NORETHINDRONE ACETATE
     Indication: CONTRACEPTION
     Dosage: 1 TABLET, QD, PO
     Route: 048
     Dates: start: 20150327

REACTIONS (6)
  - Muscle spasms [None]
  - Gastrooesophageal reflux disease [None]
  - Product quality issue [None]
  - Vomiting [None]
  - Gastrointestinal disorder [None]
  - Nausea [None]

NARRATIVE: CASE EVENT DATE: 20150327
